FAERS Safety Report 16589463 (Version 2)
Quarter: 2019Q3

REPORT INFORMATION
  Report Type: Report from Study
  Country: DE (occurrence: DE)
  Receive Date: 20190718
  Receipt Date: 20190726
  Transmission Date: 20191004
  Serious: Yes (Death, Other)
  Sender: FDA-Public Use
  Company Number: DE-BRISTOL-MYERS SQUIBB COMPANY-BMS-2019-062090

PATIENT
  Age: 52 Year
  Sex: Male
  Weight: 73 kg

DRUGS (2)
  1. NIVOLUMAB [Suspect]
     Active Substance: NIVOLUMAB
     Indication: PRODUCT USED FOR UNKNOWN INDICATION
     Dosage: 190 MILLIGRAM
     Route: 065
     Dates: start: 20181203
  2. NIVOLUMAB [Suspect]
     Active Substance: NIVOLUMAB
     Indication: NON-SMALL CELL LUNG CANCER
     Dosage: 198.9 MILLIGRAM
     Route: 065
     Dates: start: 20180816, end: 20181203

REACTIONS (2)
  - Pneumonitis [Fatal]
  - Pneumonia [Fatal]

NARRATIVE: CASE EVENT DATE: 20181217
